FAERS Safety Report 9120134 (Version 1)
Quarter: 2013Q1

REPORT INFORMATION
  Report Type: Report from Study
  Country: US (occurrence: US)
  Receive Date: 20130226
  Receipt Date: 20130226
  Transmission Date: 20140127
  Serious: Yes (Other)
  Sender: FDA-Public Use
  Company Number: US-JNJFOC-20130211122

PATIENT
  Age: 50 Year
  Sex: Male
  Weight: 78.02 kg

DRUGS (6)
  1. REMICADE [Suspect]
     Indication: CROHN^S DISEASE
     Route: 042
     Dates: start: 20130215
  2. REMICADE [Suspect]
     Indication: CROHN^S DISEASE
     Route: 042
     Dates: start: 201301
  3. PREDNISONE [Concomitant]
     Indication: CROHN^S DISEASE
     Route: 048
  4. METHYLCARBINOL [Concomitant]
     Indication: MUSCLE RELAXANT THERAPY
     Dates: start: 2012
  5. GABAPENTIN [Concomitant]
     Indication: CHEST PAIN
     Dates: start: 2012
  6. OXYCODONE [Concomitant]
     Indication: CHEST PAIN
     Route: 048

REACTIONS (1)
  - Blood blister [Not Recovered/Not Resolved]
